FAERS Safety Report 16886526 (Version 2)
Quarter: 2019Q4

REPORT INFORMATION
  Report Type: Spontaneous
  Country: US (occurrence: US)
  Receive Date: 20191004
  Receipt Date: 20191024
  Transmission Date: 20200122
  Serious: Yes (Other)
  Sender: FDA-Public Use
  Company Number: US-SERVIER-S19010350

PATIENT

DRUGS (2)
  1. ONCASPAR [Suspect]
     Active Substance: PEGASPARGASE
     Dosage: UNK
     Route: 065
     Dates: start: 20190920, end: 20190920
  2. ONCASPAR [Suspect]
     Active Substance: PEGASPARGASE
     Indication: PRODUCT USED FOR UNKNOWN INDICATION
     Dosage: UNK
     Route: 065
     Dates: start: 20190813, end: 20190813

REACTIONS (3)
  - Hypersensitivity [Recovered/Resolved]
  - Neutralising antibodies positive [Unknown]
  - Drug clearance increased [Unknown]

NARRATIVE: CASE EVENT DATE: 20190813
